FAERS Safety Report 15144695 (Version 3)
Quarter: 2018Q4

REPORT INFORMATION
  Report Type: Spontaneous
  Country: JP (occurrence: JP)
  Receive Date: 20180713
  Receipt Date: 20181011
  Transmission Date: 20190204
  Serious: Yes (Life-Threatening, Other)
  Sender: FDA-Public Use
  Company Number: JP-BRACCO-2018JP03632

PATIENT
  Age: 8 Day
  Sex: Female

DRUGS (5)
  1. DOPAMIN [DOPAMINE HYDROCHLORIDE] [Concomitant]
     Active Substance: DOPAMINE HYDROCHLORIDE
     Indication: TACHYPNOEA
     Dosage: UNK
     Dates: start: 20161227
  2. LASIX [Suspect]
     Active Substance: FUROSEMIDE
     Indication: DIURETIC THERAPY
     Dosage: 1.5 MG, Q8HR
     Route: 042
     Dates: start: 20161226, end: 20161227
  3. DOPAMIN [DOPAMINE HYDROCHLORIDE] [Concomitant]
     Active Substance: DOPAMINE HYDROCHLORIDE
     Indication: TACHYCARDIA
     Dosage: UNK
     Dates: start: 20161227
  4. IOPAMIRON [Suspect]
     Active Substance: IOPAMIDOL
     Indication: COMPUTERISED TOMOGRAM
     Dosage: 4 ML, ONCE, DAY AGE 7
     Route: 042
     Dates: start: 20161226, end: 20161226
  5. DOPAMIN [DOPAMINE HYDROCHLORIDE] [Concomitant]
     Active Substance: DOPAMINE HYDROCHLORIDE
     Indication: CARDIAC FAILURE
     Dosage: UNK
     Dates: start: 20161227

REACTIONS (4)
  - Short-bowel syndrome [Unknown]
  - Necrotising enterocolitis neonatal [Recovered/Resolved with Sequelae]
  - Dehydration [Unknown]
  - Intestinal ischaemia [Unknown]

NARRATIVE: CASE EVENT DATE: 20161227
